FAERS Safety Report 14796354 (Version 2)
Quarter: 2018Q3

REPORT INFORMATION
  Report Type: Report from Study
  Country: US (occurrence: US)
  Receive Date: 20180423
  Receipt Date: 20180719
  Transmission Date: 20181010
  Serious: No
  Sender: FDA-Public Use
  Company Number: US-AMGEN-USASL2018006353

PATIENT
  Age: 67 Year
  Sex: Female

DRUGS (2)
  1. REPATHA [Suspect]
     Active Substance: EVOLOCUMAB
     Indication: HYPERCHOLESTEROLAEMIA
  2. REPATHA [Suspect]
     Active Substance: EVOLOCUMAB
     Indication: BLOOD CHOLESTEROL INCREASED
     Dosage: 140 MG, Q2WK
     Route: 065
     Dates: start: 201801, end: 2018

REACTIONS (14)
  - Night sweats [Unknown]
  - Nasopharyngitis [Unknown]
  - Dizziness postural [Unknown]
  - Ocular hyperaemia [Unknown]
  - Blood glucose increased [Unknown]
  - Hot flush [Unknown]
  - Sinus disorder [Unknown]
  - Swelling face [Unknown]
  - Dizziness [Unknown]
  - Sinus congestion [Unknown]
  - Nasal congestion [Unknown]
  - Influenza like illness [Unknown]
  - Feeling abnormal [Unknown]
  - Sinusitis [Unknown]

NARRATIVE: CASE EVENT DATE: 2018
